FAERS Safety Report 21661241 (Version 2)
Quarter: 2022Q4

REPORT INFORMATION
  Report Type: Report from Study
  Country: GR (occurrence: GR)
  Receive Date: 20221130
  Receipt Date: 20221208
  Transmission Date: 20230113
  Serious: Yes (Hospitalization, Other)
  Sender: FDA-Public Use
  Company Number: GR-CELLTRION INC.-2022GR016380

PATIENT

DRUGS (3)
  1. INFLIXIMAB [Suspect]
     Active Substance: INFLIXIMAB
     Indication: Rheumatoid arthritis
     Dosage: 4 X 100 MG AND 5X100MG/ EVERY 8 WEEKS (4/10/2022 FIFTH DOSE)
     Route: 042
     Dates: start: 20220504, end: 20221004
  2. INFLIXIMAB [Suspect]
     Active Substance: INFLIXIMAB
     Dosage: 5X100MG (4/10/2022)
     Route: 042
     Dates: start: 20220405, end: 20221030
  3. INFLIXIMAB [Suspect]
     Active Substance: INFLIXIMAB
     Dosage: 5X100MG / EVERY 8 WEEKS
     Route: 042
     Dates: start: 20221130

REACTIONS (3)
  - Anaphylactic shock [Recovered/Resolved]
  - Malaise [Recovered/Resolved]
  - Intentional dose omission [Recovered/Resolved]

NARRATIVE: CASE EVENT DATE: 20221004
